FAERS Safety Report 9250500 (Version 1)
Quarter: 2013Q1

REPORT INFORMATION
  Report Type: Spontaneous
  Country: US (occurrence: None)
  Receive Date: 20130305
  Receipt Date: 20130305
  Transmission Date: 20140127
  Serious: Yes (Other)
  Sender: FDA-Public Use
  Company Number: 163-21880-12093070

PATIENT
  Sex: Male
  Weight: 63.5 kg

DRUGS (6)
  1. REVLIMID [Suspect]
     Indication: PLASMA CELL MYELOMA
     Dosage: 5 MG, 1 IN 2 D, PO
     Route: 048
     Dates: start: 20080422, end: 20120731
  2. PEPSID (FAMOTIDINE) [Concomitant]
  3. SODIUM BICARBONATE (SODIUM BICARBONATE) [Concomitant]
  4. RENAGEL (SEVELAMER HYDROCHLORIDE) [Concomitant]
  5. METOPROLOL (METOPROLOL) [Concomitant]
  6. WARFARIN (WARFARIN) [Concomitant]

REACTIONS (2)
  - Renal impairment [None]
  - Light chain analysis increased [None]
